FAERS Safety Report 16137269 (Version 2)
Quarter: 2019Q2

REPORT INFORMATION
  Report Type: Spontaneous
  Country: FR (occurrence: FR)
  Receive Date: 20190330
  Receipt Date: 20190529
  Transmission Date: 20190711
  Serious: Yes (Death, Other)
  Sender: FDA-Public Use
  Company Number: FR-AUROBINDO-AUR-APL-2019-015390

PATIENT

DRUGS (13)
  1. MIANSERIN ARROW FILM-COATED TABLET 10MG [Suspect]
     Active Substance: MIANSERIN HYDROCHLORIDE
     Indication: DEPRESSION
     Dosage: 1 DOSAGE FORM, DAILY
     Route: 048
     Dates: start: 20190129, end: 20190224
  2. SPIRONOLACTONE ARROW FILM-COATED TABLET 25 MG [Suspect]
     Active Substance: SPIRONOLACTONE
     Indication: HYPERTENSION
     Dosage: 1 DOSAGE FORM, DAILY
     Route: 048
     Dates: end: 20190226
  3. PREVISCAN (FLUINDIONE) [Suspect]
     Active Substance: FLUINDIONE
     Indication: ATRIAL FIBRILLATION
     Dosage: 0.5 DOSAGE FORM, DAILY
     Route: 048
     Dates: start: 20190222, end: 20190224
  4. PANTOPRAZOL ARROW 40 MG  POWDER FOR SOLUTION FOR INJECTION [Suspect]
     Active Substance: PANTOPRAZOLE SODIUM
     Indication: PEPTIC ULCER
     Dosage: 1 DOSAGE FORM, DAILY
     Route: 042
     Dates: start: 20190210
  5. FLUCONAZOLE KABI [Suspect]
     Active Substance: FLUCONAZOLE
     Indication: PRODUCT USED FOR UNKNOWN INDICATION
     Dosage: 400 MILLIGRAM, DAILY
     Route: 042
     Dates: start: 20190126, end: 20190226
  6. TYGACIL [Suspect]
     Active Substance: TIGECYCLINE
     Indication: SEPSIS
     Dosage: 4 DOSAGE FORM, DAILY
     Route: 042
     Dates: start: 20190125
  7. ESIDREX [Suspect]
     Active Substance: HYDROCHLOROTHIAZIDE
     Indication: HYPERTENSION
     Dosage: 1 DOSAGE FORM, DAILY
     Route: 048
     Dates: start: 20190220, end: 20190226
  8. LOVENOX [Suspect]
     Active Substance: ENOXAPARIN SODIUM
     Indication: THROMBOSIS PROPHYLAXIS
     Dosage: 1 DOSAGE FORM, DAILY
     Route: 058
     Dates: start: 20190218, end: 20190225
  9. TYGACIL [Suspect]
     Active Substance: TIGECYCLINE
     Dosage: 2 DOSAGE FORM, DAILY
     Route: 042
     Dates: start: 20190125
  10. DALACINE [Suspect]
     Active Substance: CLINDAMYCIN
     Indication: SEPSIS
     Dosage: 6 DOSAGE FORM, DAILY
     Route: 048
     Dates: start: 20190129
  11. DOLIPRANE [Suspect]
     Active Substance: ACETAMINOPHEN
     Indication: PAIN
     Dosage: 2 DOSAGE FORM, DAILY
     Route: 048
     Dates: start: 20190215, end: 20190225
  12. ZAVICEFTA [Suspect]
     Active Substance: AVIBACTAM SODIUM\CEFTAZIDIME
     Indication: SEPSIS
     Dosage: 3 DOSAGE FORM, ONCE A DAY
     Route: 042
     Dates: start: 20190131
  13. IRBESARTAN. [Suspect]
     Active Substance: IRBESARTAN
     Indication: HYPERTENSION
     Dosage: 2 DOSAGE FORM, DAILY
     Route: 048
     Dates: start: 20190130, end: 20190226

REACTIONS (3)
  - Acute kidney injury [Fatal]
  - Metabolic acidosis [Fatal]
  - Shock haemorrhagic [Fatal]

NARRATIVE: CASE EVENT DATE: 20190226
